FAERS Safety Report 11516663 (Version 3)
Quarter: 2016Q3

REPORT INFORMATION
  Report Type: Spontaneous
  Country: ES (occurrence: ES)
  Receive Date: 20150917
  Receipt Date: 20160902
  Transmission Date: 20161109
  Serious: Yes (Life-Threatening, Hospitalization)
  Sender: FDA-Public Use
  Company Number: ES-BAYER-2015-423696

PATIENT
  Age: 53 Year
  Sex: Male

DRUGS (12)
  1. ENOXAPARIN [Concomitant]
     Active Substance: ENOXAPARIN
  2. RAMIPRIL. [Concomitant]
     Active Substance: RAMIPRIL
  3. METAMIZOLE [Concomitant]
     Active Substance: METAMIZOLE
  4. PRIMPERAN [Concomitant]
     Active Substance: METOCLOPRAMIDE HYDROCHLORIDE
  5. IMIPENEM [Concomitant]
     Active Substance: IMIPENEM
  6. ULTRAVIST [Suspect]
     Active Substance: IOPROMIDE
     Indication: COMPUTERISED TOMOGRAM ABDOMEN
     Dosage: 140 ML, RATE = 4ML/S (CC)
     Route: 042
     Dates: start: 20150914, end: 20150914
  7. CARVEDILOL. [Concomitant]
     Active Substance: CARVEDILOL
  8. PANTOPRAZOLE [Concomitant]
     Active Substance: PANTOPRAZOLE SODIUM
  9. PARACETAMOL [Concomitant]
     Active Substance: ACETAMINOPHEN
  10. ULTRAVIST [Suspect]
     Active Substance: IOPROMIDE
     Indication: X-RAY WITH CONTRAST
  11. FLUCONAZOLE. [Concomitant]
     Active Substance: FLUCONAZOLE
  12. MEPERIDINE [Concomitant]
     Active Substance: MEPERIDINE

REACTIONS (3)
  - Sneezing [Recovered/Resolved]
  - Eyelid oedema [Recovered/Resolved]
  - Urticaria [Recovered/Resolved]

NARRATIVE: CASE EVENT DATE: 20150914
